FAERS Safety Report 23327733 (Version 1)
Quarter: 2023Q4

REPORT INFORMATION
  Report Type: Spontaneous
  Country: FR (occurrence: FR)
  Receive Date: 20231221
  Receipt Date: 20231221
  Transmission Date: 20240109
  Serious: Yes (Life-Threatening)
  Sender: FDA-Public Use
  Company Number: None

PATIENT
  Age: 66 Year
  Sex: Female
  Weight: 52 kg

DRUGS (5)
  1. PROPOFOL [Suspect]
     Active Substance: PROPOFOL
     Indication: General anaesthesia
     Route: 042
     Dates: start: 20231123, end: 20231123
  2. EPHEDRINE [Suspect]
     Active Substance: EPHEDRINE
     Indication: General anaesthesia
     Dosage: INTRAVENOUS
     Dates: start: 20231123, end: 20231123
  3. DEXAMETHASONE [Suspect]
     Active Substance: DEXAMETHASONE
     Indication: General anaesthesia
     Dosage: INTRAVENOUS
     Dates: start: 20231123, end: 20231123
  4. AMOXICILLIN\CLAVULANATE POTASSIUM [Suspect]
     Active Substance: AMOXICILLIN\CLAVULANATE POTASSIUM
     Indication: Antibiotic prophylaxis
     Dosage: INTRAVENOUS
     Dates: start: 20231123, end: 20231123
  5. ALFENTANIL [Suspect]
     Active Substance: ALFENTANIL
     Indication: General anaesthesia
     Dosage: INTRAVENOUS
     Dates: start: 20231123, end: 20231123

REACTIONS (1)
  - Anaphylactic shock [Recovered/Resolved]

NARRATIVE: CASE EVENT DATE: 20231123
